FAERS Safety Report 5681953-0 (Version None)
Quarter: 2008Q1

REPORT INFORMATION
  Report Type: 
  Country: None (occurrence: None)
  Receive Date: 20080327
  Receipt Date: 20070809
  Transmission Date: 20080703
  Serious: Yes (Hospitalization)
  Sender: FDA-Public Use
  Company Number: US-BAYER-US-2007-011248

PATIENT
  Age: 25 Year
  Sex: Female
  Weight: 89 kg

DRUGS (1)
  1. MIRENA [Suspect]
     Indication: CONTRACEPTION
     Route: 015
     Dates: start: 20060501, end: 20070330

REACTIONS (4)
  - CHLAMYDIAL INFECTION [None]
  - NAUSEA [None]
  - PELVIC INFLAMMATORY DISEASE [None]
  - VOMITING [None]
